FAERS Safety Report 23812386 (Version 1)
Quarter: 2024Q2

REPORT INFORMATION
  Report Type: Spontaneous
  Country: VN (occurrence: VN)
  Receive Date: 20240503
  Receipt Date: 20240503
  Transmission Date: 20240715
  Serious: Yes (Hospitalization, Other)
  Sender: FDA-Public Use
  Company Number: VN-SANDOZ-NVSC2022VN293672

PATIENT
  Age: 57 Year
  Sex: Male
  Weight: 53 kg

DRUGS (14)
  1. LEVOFLOXACIN [Suspect]
     Active Substance: LEVOFLOXACIN
     Indication: Tuberculosis
     Dosage: 1000MG/250MG
     Route: 048
     Dates: start: 20221202, end: 20221216
  2. LEVOFLOXACIN [Suspect]
     Active Substance: LEVOFLOXACIN
     Dosage: 1000MG/250MG
     Route: 048
     Dates: start: 20221227
  3. LEVOFLOXACIN [Suspect]
     Active Substance: LEVOFLOXACIN
     Dosage: 1000MG/250MG
     Route: 048
     Dates: start: 20230106
  4. LEVOFLOXACIN [Suspect]
     Active Substance: LEVOFLOXACIN
     Dosage: 1000MG/250MG
     Route: 048
     Dates: start: 20230107
  5. LEVOFLOXACIN [Suspect]
     Active Substance: LEVOFLOXACIN
     Dosage: 1000MG/250MG, (DOSE NUMBER: 105)
     Route: 048
     Dates: start: 20230317
  6. LEVOFLOXACIN [Suspect]
     Active Substance: LEVOFLOXACIN
     Dosage: UNK
     Route: 065
     Dates: start: 20230908
  7. LINEZOLID [Suspect]
     Active Substance: LINEZOLID
     Indication: Tuberculosis
     Dosage: 1200MG/600MG
     Route: 048
     Dates: start: 20221202, end: 20221216
  8. LINEZOLID [Suspect]
     Active Substance: LINEZOLID
     Dosage: 300MG/600MG
     Route: 048
     Dates: start: 20221227
  9. LINEZOLID [Suspect]
     Active Substance: LINEZOLID
     Dosage: 300MG/600MG (DOSE NUMBER: 56)
     Route: 048
     Dates: start: 20230313
  10. LINEZOLID [Suspect]
     Active Substance: LINEZOLID
     Dosage: 300MG/600MGNK
     Route: 048
     Dates: start: 20230104, end: 20230105
  11. LINEZOLID [Suspect]
     Active Substance: LINEZOLID
     Dosage: 300MG/600MGNK
     Route: 048
     Dates: start: 20230220
  12. ACTRAPID [Concomitant]
     Active Substance: INSULIN HUMAN
     Indication: Product used for unknown indication
     Dosage: 30 IU, QD
     Route: 065
     Dates: start: 202202
  13. LANTUS [Concomitant]
     Active Substance: INSULIN GLARGINE
     Indication: Product used for unknown indication
     Dosage: 20 IU, QD (DAILY)
     Route: 065
     Dates: start: 202202
  14. INSULIN HUMAN [Concomitant]
     Active Substance: INSULIN HUMAN
     Indication: Product used for unknown indication
     Dosage: UNK
     Route: 065
     Dates: start: 202202

REACTIONS (5)
  - Haemoptysis [Recovered/Resolved]
  - Haemoptysis [Recovered/Resolved]
  - Haemoptysis [Recovered/Resolved]
  - Hyperglycaemia [Recovered/Resolved]
  - Anaemia [Recovered/Resolved]

NARRATIVE: CASE EVENT DATE: 20221215
